FAERS Safety Report 4313168-2 (Version None)
Quarter: 2004Q1

REPORT INFORMATION
  Report Type: 
  Country: None (occurrence: None)
  Receive Date: 20040304
  Receipt Date: 20040217
  Transmission Date: 20041129
  Serious: Yes (Hospitalization)
  Sender: FDA-Public Use
  Company Number: GBT040201218

PATIENT
  Age: 57 Year
  Sex: Male
  Weight: 69 kg

DRUGS (6)
  1. ALIMTA [Suspect]
     Indication: MESOTHELIOMA
     Dosage: 950 MG/1 OTHER
     Dates: start: 20031218
  2. CISPLATIN [Suspect]
     Indication: MESOTHELIOMA
     Dosage: 140 MG/1 OTHER
     Route: 050
     Dates: start: 20041218
  3. FOLIC ACID [Concomitant]
  4. LANSOPRAZOLE [Concomitant]
  5. CANDESARTAN [Concomitant]
  6. MORPHINE SULFATE [Concomitant]

REACTIONS (34)
  - ANAEMIA [None]
  - ARTHRALGIA [None]
  - BLOOD ALBUMIN DECREASED [None]
  - BLOOD ALKALINE PHOSPHATASE INCREASED [None]
  - BLOOD BILIRUBIN INCREASED [None]
  - BLOOD CALCIUM DECREASED [None]
  - BLOOD PHOSPHORUS DECREASED [None]
  - BLOOD PRESSURE INCREASED [None]
  - BLOOD SODIUM DECREASED [None]
  - C-REACTIVE PROTEIN INCREASED [None]
  - CARDIOMEGALY [None]
  - CHEST PAIN [None]
  - CHILLS [None]
  - CONFUSIONAL STATE [None]
  - DYSPNOEA [None]
  - ELECTROCARDIOGRAM ST SEGMENT ELEVATION [None]
  - HALLUCINATION, VISUAL [None]
  - HEART RATE INCREASED [None]
  - HICCUPS [None]
  - HYPERHIDROSIS [None]
  - LETHARGY [None]
  - NAUSEA [None]
  - NEUTROPENIC SEPSIS [None]
  - PALPITATIONS [None]
  - PARANOIA [None]
  - PERICARDITIS [None]
  - PYREXIA [None]
  - SPLINTER HAEMORRHAGES [None]
  - TEMPERATURE REGULATION DISORDER [None]
  - THROMBOCYTHAEMIA [None]
  - TINNITUS [None]
  - TREMOR [None]
  - UPPER RESPIRATORY TRACT INFECTION [None]
  - VOMITING [None]
